FAERS Safety Report 16724027 (Version 1)
Quarter: 2019Q3

REPORT INFORMATION
  Report Type: Spontaneous
  Country: DE (occurrence: DE)
  Receive Date: 20190821
  Receipt Date: 20190821
  Transmission Date: 20191005
  Serious: Yes (Life-Threatening)
  Sender: FDA-Public Use
  Company Number: DE-FRESENIUS KABI-FK201909236

PATIENT
  Age: 58 Year
  Sex: Female

DRUGS (2)
  1. CLONIDINE HYDROCHLORIDE INJECTION (MANUFACTURER UNKNOWN) [Suspect]
     Active Substance: CLONIDINE HYDROCHLORIDE
     Indication: NEURALGIA
     Route: 037
  2. MORPHINE (MANUFACTURER UNKNOWN) [Suspect]
     Active Substance: MORPHINE
     Indication: NEURALGIA
     Route: 037

REACTIONS (4)
  - Myoclonus [Recovered/Resolved]
  - Withdrawal syndrome [Recovered/Resolved]
  - Depressed level of consciousness [Recovered/Resolved]
  - Hypertensive crisis [Recovered/Resolved]
